FAERS Safety Report 7321826-0 (Version None)
Quarter: 2011Q1

REPORT INFORMATION
  Report Type: 
  Country: None (occurrence: None)
  Receive Date: 20110228
  Receipt Date: 20110215
  Transmission Date: 20110831
  Serious: Yes (Life-Threatening, Hospitalization, Other)
  Sender: FDA-Public Use
  Company Number: PHHY2011GB12427

PATIENT
  Age: 71 Year
  Sex: Male

DRUGS (19)
  1. AMPICILLIN SODIUM/SULBACTAM SODIUM [Suspect]
     Dosage: 180 MG, UNK
  2. NICORANDIL [Concomitant]
  3. ISOSORBIDE MONONITRATE [Concomitant]
  4. SEVOFLURANE [Concomitant]
  5. BISPROLOL [Concomitant]
  6. METOCLOPRAMIDE HCL [Concomitant]
  7. LISINOPRIL [Concomitant]
  8. FUROSEMIDE [Concomitant]
  9. RANITIDINE [Concomitant]
  10. PROPOFOL [Concomitant]
  11. FELODIPINE [Concomitant]
  12. ATORVASTATIN [Concomitant]
  13. PENICILLIN NOS [Concomitant]
  14. ASPIRIN [Concomitant]
     Dosage: 75 MG, UNK
  15. GLYCERYL TRINITRATE [Concomitant]
  16. TEMAZEPAM [Concomitant]
  17. GELOFUSINE                              /AUS/ [Concomitant]
  18. FENTANYL [Concomitant]
  19. ROCURONIUM BROMIDE [Concomitant]

REACTIONS (5)
  - ANAPHYLACTIC REACTION [None]
  - VENTRICULAR FIBRILLATION [None]
  - FIBRINOLYSIS [None]
  - BLOOD PRESSURE SYSTOLIC DECREASED [None]
  - BRONCHOSPASM [None]
